FAERS Safety Report 7347900-0 (Version None)
Quarter: 2011Q1

REPORT INFORMATION
  Report Type: 
  Country: None (occurrence: None)
  Receive Date: 20110311
  Receipt Date: 20110302
  Transmission Date: 20110831
  Serious: Yes (Life-Threatening, Hospitalization, Disabling)
  Sender: FDA-Public Use
  Company Number: FR-GENENTECH-244892

PATIENT
  Sex: Female

DRUGS (14)
  1. AZACITIDINE [Suspect]
     Indication: PRODUCT USED FOR UNKNOWN INDICATION
  2. ZELITREX [Concomitant]
     Indication: PRODUCT USED FOR UNKNOWN INDICATION
  3. STILNOX [Concomitant]
     Indication: PRODUCT USED FOR UNKNOWN INDICATION
  4. MABTHERA [Suspect]
     Indication: B-CELL LYMPHOMA
     Dosage: 375 MG/M2, UNK
     Route: 042
     Dates: start: 20060412, end: 20061123
  5. ENDOXAN [Suspect]
     Indication: B-CELL LYMPHOMA
     Dosage: 700 MG/M2, UNK
     Route: 042
     Dates: start: 20060412, end: 20061123
  6. XANAX [Concomitant]
     Indication: PRODUCT USED FOR UNKNOWN INDICATION
  7. NEUPOGEN [Suspect]
     Indication: NEUTROPENIA
     Dosage: 30 MIU, UNK
     Route: 042
     Dates: start: 20061023, end: 20061030
  8. NEUPOGEN [Suspect]
     Dosage: UNK, UNK
     Dates: start: 20061225, end: 20061227
  9. ANTIVIRAL AGENTS [Suspect]
     Indication: PRODUCT USED FOR UNKNOWN INDICATION
  10. NEULASTA [Concomitant]
     Indication: PRODUCT USED FOR UNKNOWN INDICATION
  11. NEUPOGEN [Suspect]
     Dosage: UNK, UNK
     Dates: start: 20061201, end: 20061206
  12. FLUDARA [Suspect]
     Indication: B-CELL LYMPHOMA
     Dosage: 25 MG/M2, UNK
     Route: 042
     Dates: start: 20060823, end: 20061123
  13. ANTI-FUNGAL [Suspect]
     Indication: PRODUCT USED FOR UNKNOWN INDICATION
  14. BACTRIM [Concomitant]
     Indication: PRODUCT USED FOR UNKNOWN INDICATION

REACTIONS (2)
  - LUNG DISORDER [None]
  - PULMONARY FIBROSIS [None]
